FAERS Safety Report 6166596-7 (Version None)
Quarter: 2009Q2

REPORT INFORMATION
  Report Type: 
  Country: None (occurrence: None)
  Receive Date: 20090424
  Receipt Date: 20080321
  Transmission Date: 20091009
  Serious: No
  Sender: FDA-Public Use
  Company Number: US-ASTRAZENECA-2008UW05764

PATIENT
  Age: 32 Year
  Sex: Female
  Weight: 133.8 kg

DRUGS (5)
  1. ZOMIG-ZMT [Suspect]
     Indication: MIGRAINE
     Route: 048
     Dates: start: 20080321
  2. WELLBUTRIN [Concomitant]
  3. ABILIFY [Concomitant]
  4. TOPAMAX [Concomitant]
  5. METFORMIN HCL [Concomitant]

REACTIONS (2)
  - FEELING ABNORMAL [None]
  - THROAT TIGHTNESS [None]
